FAERS Safety Report 9358345 (Version 1)
Quarter: 2013Q4

REPORT INFORMATION
  Report Type: Spontaneous
  Country: US (occurrence: None)
  Receive Date: 20130619
  Receipt Date: 20130619
  Transmission Date: 20140711
  Serious: No
  Sender: FDA-Public Use
  Company Number: None

PATIENT
  Sex: 0

DRUGS (1)
  1. SODIUM FLUORIDE TOOTHPASTE (SODIUM FLUORIDE) [Suspect]
     Indication: PRODUCT USED FOR UNKNOWN INDICATION
     Dosage: DENTAL
     Route: 004

REACTIONS (6)
  - Tooth infection [None]
  - Sepsis [None]
  - General physical health deterioration [None]
  - Malaise [None]
  - Disability [None]
  - Oral infection [None]
